FAERS Safety Report 21247026 (Version 8)
Quarter: 2023Q4

REPORT INFORMATION
  Report Type: Report from Study
  Country: US (occurrence: US)
  Receive Date: 20220824
  Receipt Date: 20231016
  Transmission Date: 20240109
  Serious: Yes (Hospitalization, Other)
  Sender: FDA-Public Use
  Company Number: US-NOVARTISTESTPH-NVSC2022US187077

PATIENT
  Sex: Female

DRUGS (4)
  1. VIJOICE [Suspect]
     Active Substance: ALPELISIB
     Indication: PIK3CA related overgrowth spectrum
     Dosage: 50 MG, QD
     Route: 048
     Dates: start: 202202
  2. VIJOICE [Suspect]
     Active Substance: ALPELISIB
     Dosage: 50 MG, QD
     Route: 048
     Dates: start: 20220701, end: 20230111
  3. VIJOICE [Suspect]
     Active Substance: ALPELISIB
     Dosage: TAKING 2 TABLETS FOR 100MG/DAY UNTIL 125 MG ARRIVES
     Route: 048
     Dates: start: 202208
  4. VIJOICE [Suspect]
     Active Substance: ALPELISIB
     Dosage: 2.5 DOSAGE FORM, QD (125 MG, QD)
     Route: 048

REACTIONS (13)
  - Pharyngitis streptococcal [Unknown]
  - Thrombosis [Recovered/Resolved]
  - Abdominal discomfort [Recovered/Resolved]
  - Pain [Recovered/Resolved]
  - Wrong technique in product usage process [Recovered/Resolved]
  - Limb injury [Not Recovered/Not Resolved]
  - Pain in extremity [Unknown]
  - Axillary mass [Recovering/Resolving]
  - Contusion [Recovered/Resolved]
  - Skin discolouration [Unknown]
  - Alopecia [Unknown]
  - Nausea [Unknown]
  - Wrong technique in product usage process [Unknown]

NARRATIVE: CASE EVENT DATE: 20220101
